FAERS Safety Report 19099054 (Version 5)
Quarter: 2021Q3

REPORT INFORMATION
  Report Type: Report from Study
  Country: CN (occurrence: CN)
  Receive Date: 20210406
  Receipt Date: 20210823
  Transmission Date: 20211014
  Serious: Yes (Death)
  Sender: FDA-Public Use
  Company Number: CN-ROCHE-2804132

PATIENT
  Age: 50 Year
  Sex: Male
  Weight: 58.7 kg

DRUGS (16)
  1. LACTULOSE. [Concomitant]
     Active Substance: LACTULOSE
     Route: 048
     Dates: start: 20210120
  2. METHADONE HYDROCHLORIDE. [Concomitant]
     Active Substance: METHADONE HYDROCHLORIDE
     Indication: PAIN
     Dates: start: 20210126
  3. MUCOPOLYSACCHARIDE POLYSULFATE [Concomitant]
     Dates: start: 20210126
  4. MEGESTROL ACETATE. [Concomitant]
     Active Substance: MEGESTROL ACETATE
     Dates: start: 20210224, end: 20210302
  5. CISPLATIN. [Suspect]
     Active Substance: CISPLATIN
     Indication: OESOPHAGEAL SQUAMOUS CELL CARCINOMA
     Dosage: 60?80 MG/M^2 ON DAY 1 OF EACH 21?DAY CYCLE FOR 6 CYCLES?THIS WAS ALSO THE MOST RECENT DOSE OF CISPLA
     Route: 042
     Dates: start: 20210129
  6. RIVAROXABAN [Concomitant]
     Active Substance: RIVAROXABAN
     Dates: start: 20210201
  7. TIRAGOLUMAB. [Suspect]
     Active Substance: TIRAGOLUMAB
     Indication: OESOPHAGEAL SQUAMOUS CELL CARCINOMA
     Dosage: ON DAY 1 OF EACH 21?DAY CYCLE?THIS WAS ALSO THE MOST RECENT DOSE OF MTIG 7192A PRIOR TO EVENT ONSET
     Route: 042
     Dates: start: 20210129
  8. OXYCODONE HYDROCHLORIDE. [Concomitant]
     Active Substance: OXYCODONE HYDROCHLORIDE
     Indication: PAIN
     Dates: start: 20210224
  9. ONDANSETRON HYDROCHLORIDE. [Concomitant]
     Active Substance: ONDANSETRON HYDROCHLORIDE
     Indication: NAUSEA
     Dates: start: 20210224, end: 20210302
  10. OLANZAPINE. [Concomitant]
     Active Substance: OLANZAPINE
     Dates: start: 20210202
  11. ATEZOLIZUMAB. [Suspect]
     Active Substance: ATEZOLIZUMAB
     Indication: OESOPHAGEAL SQUAMOUS CELL CARCINOMA
     Dosage: ON DAY 1 OF EACH 21?DAY CYCLE?THIS WAS ALSO THE MOST RECENT DOSE OF ATEZOLIZUMAB PRIOR TO EVENT ONSE
     Route: 042
     Dates: start: 20210129
  12. ACETYLCYSTEINE. [Concomitant]
     Active Substance: ACETYLCYSTEINE
     Indication: PRODUCTIVE COUGH
     Dosage: EFFERVESCENT
     Dates: start: 20210130
  13. MORPHINE HYDROCHLORIDE [Concomitant]
     Active Substance: MORPHINE HYDROCHLORIDE
     Indication: PAIN
     Dates: start: 20210201
  14. PREGABALIN. [Concomitant]
     Active Substance: PREGABALIN
     Indication: PAIN
     Dates: start: 20210120
  15. LEUCOGEN [Concomitant]
     Active Substance: LEUCOGEN
     Dates: start: 20210201
  16. PACLITAXEL. [Suspect]
     Active Substance: PACLITAXEL
     Indication: OESOPHAGEAL SQUAMOUS CELL CARCINOMA
     Dosage: ON DAY 1 OF EACH 21?DAY CYCLE FOR 6 CYCLES?THIS WAS ALSO THE MOST RECENT DOSE OF PACLITAXEL (285.25
     Route: 042
     Dates: start: 20210129

REACTIONS (1)
  - Death [Fatal]

NARRATIVE: CASE EVENT DATE: 20210401
